FAERS Safety Report 23972282 (Version 1)
Quarter: 2024Q2

REPORT INFORMATION
  Report Type: Spontaneous
  Country: AU (occurrence: AU)
  Receive Date: 20240613
  Receipt Date: 20240613
  Transmission Date: 20240716
  Serious: Yes (Hospitalization)
  Sender: FDA-Public Use
  Company Number: AU-002147023-NVSC2024AU120722

PATIENT
  Age: 16 Year
  Sex: Male
  Weight: 70 kg

DRUGS (3)
  1. ALPELISIB [Suspect]
     Active Substance: ALPELISIB
     Indication: Malformation venous
     Dosage: 200 MG, QD
     Route: 048
     Dates: start: 20240522, end: 20240603
  2. ALPELISIB [Suspect]
     Active Substance: ALPELISIB
     Indication: Acquired gene mutation
  3. ALPELISIB [Suspect]
     Active Substance: ALPELISIB
     Indication: Coagulopathy

REACTIONS (4)
  - Hyperglycaemia [Recovering/Resolving]
  - Rash erythematous [Recovering/Resolving]
  - Urticaria [Recovering/Resolving]
  - Product use in unapproved indication [Unknown]

NARRATIVE: CASE EVENT DATE: 20240522
